FAERS Safety Report 10784318 (Version 1)
Quarter: 2015Q1

REPORT INFORMATION
  Report Type: Report from Study
  Country: US (occurrence: US)
  Receive Date: 20150211
  Receipt Date: 20150211
  Transmission Date: 20150721
  Serious: Yes (Death, Other)
  Sender: FDA-Public Use
  Company Number: US-ASTRAZENECA-2015SE11499

PATIENT
  Age: 30316 Day
  Sex: Male
  Weight: 64.9 kg

DRUGS (11)
  1. SYMBICORT [Suspect]
     Active Substance: BUDESONIDE\FORMOTEROL FUMARATE DIHYDRATE
     Indication: CHRONIC OBSTRUCTIVE PULMONARY DISEASE
     Dosage: BID
     Route: 055
     Dates: start: 201406, end: 20150122
  2. CLOPIDOGREL [Concomitant]
     Active Substance: CLOPIDOGREL BISULFATE
     Indication: ANTICOAGULANT THERAPY
     Route: 054
     Dates: start: 2005
  3. SAWPALMENTTO [Concomitant]
  4. SYMBICORT [Suspect]
     Active Substance: BUDESONIDE\FORMOTEROL FUMARATE DIHYDRATE
     Indication: EMPHYSEMA
     Dosage: BID
     Route: 055
     Dates: start: 201406, end: 20150122
  5. NIACINAMIDE [Concomitant]
     Active Substance: NIACINAMIDE
     Indication: THYROID DISORDER
  6. NIACINAMIDE [Concomitant]
     Active Substance: NIACINAMIDE
     Indication: HYPOTHALAMO-PITUITARY DISORDER
  7. VITAMIN C [Concomitant]
     Active Substance: ASCORBIC ACID
  8. LEVOTHYROXINE [Concomitant]
     Active Substance: LEVOTHYROXINE
     Indication: THYROID DISORDER
  9. SIMVASTATIN. [Concomitant]
     Active Substance: SIMVASTATIN
     Indication: CARDIAC DISORDER
  10. VITAMIN E [Concomitant]
     Active Substance: .ALPHA.-TOCOPHEROL
  11. XANAX [Concomitant]
     Active Substance: ALPRAZOLAM
     Indication: INSOMNIA

REACTIONS (12)
  - Hypophagia [Unknown]
  - Intentional product misuse [Unknown]
  - Neuralgia [Unknown]
  - Weight decreased [Unknown]
  - Dyskinesia [Unknown]
  - Death [Fatal]
  - Oral pain [Unknown]
  - Asthenia [Unknown]
  - Dyspnoea [Unknown]
  - Pain [Unknown]
  - Herpes zoster [Unknown]
  - Chronic obstructive pulmonary disease [Unknown]

NARRATIVE: CASE EVENT DATE: 20130503
